FAERS Safety Report 11862940 (Version 1)
Quarter: 2015Q4

REPORT INFORMATION
  Report Type: Spontaneous
  Country: US (occurrence: US)
  Receive Date: 20151223
  Receipt Date: 20151223
  Transmission Date: 20160305
  Serious: Yes (Hospitalization, Other)
  Sender: FDA-Public Use
  Company Number: US-PAR PHARMACEUTICAL COMPANIES-2015SCPR015033

PATIENT

DRUGS (2)
  1. STANDARD THERAPY [Concomitant]
     Indication: SUBARACHNOID HAEMORRHAGE
     Dosage: UNK UNK, UNKNOWN
     Route: 065
  2. VASOSTRICT [Suspect]
     Active Substance: VASOPRESSIN
     Indication: SUBARACHNOID HAEMORRHAGE
     Dosage: UNK UNK, UNKNOWN
     Route: 065

REACTIONS (1)
  - Cerebral vasoconstriction [Unknown]
